FAERS Safety Report 9345955 (Version 1)
Quarter: 2013Q2

REPORT INFORMATION
  Report Type: Spontaneous
  Country: US (occurrence: US)
  Receive Date: 20130613
  Receipt Date: 20130613
  Transmission Date: 20140414
  Serious: No
  Sender: FDA-Public Use
  Company Number: US-BAYER-2013-068848

PATIENT
  Age: 91 Year
  Sex: Male
  Weight: 63.49 kg

DRUGS (2)
  1. ALEVE TABLET [Suspect]
     Dosage: 2 DF, PRN
     Route: 048
     Dates: start: 2010, end: 201305
  2. ALEVE TABLET [Suspect]
     Dosage: DAILY FOR FEW WEEKS
     Dates: start: 2013

REACTIONS (3)
  - Oesophageal pain [Recovered/Resolved]
  - Dyspepsia [Recovered/Resolved]
  - Incorrect drug administration duration [None]
